FAERS Safety Report 7944133-1 (Version None)
Quarter: 2011Q4

REPORT INFORMATION
  Report Type: 
  Country: None (occurrence: None)
  Receive Date: 20111128
  Receipt Date: 20111116
  Transmission Date: 20120403
  Serious: Yes (Hospitalization, Other)
  Sender: FDA-Public Use
  Company Number: US-ASTRAZENECA-2010SE59074

PATIENT
  Age: 75 Year
  Sex: Male

DRUGS (10)
  1. PREDNISONE TAB [Concomitant]
     Indication: DRUG ERUPTION
  2. CRESTOR [Suspect]
     Route: 048
     Dates: start: 20101030
  3. ASPIRIN [Concomitant]
  4. ATENOLOL [Concomitant]
     Dosage: ONE ATENOLOL PER DAY
  5. CRESTOR [Suspect]
     Indication: TYPE IIA HYPERLIPIDAEMIA
     Route: 048
     Dates: start: 20100901, end: 20101001
  6. ATENOLOL [Concomitant]
  7. PLAVIX [Concomitant]
  8. ASPIRIN [Concomitant]
     Dosage: ONE ASPIRIN PER DAY
  9. CLINDAMYCIN [Concomitant]
  10. NIACIN [Concomitant]

REACTIONS (5)
  - CORONARY ARTERY OCCLUSION [None]
  - THERAPEUTIC RESPONSE UNEXPECTED [None]
  - TOOTH FRACTURE [None]
  - INFLUENZA [None]
  - VESSEL PUNCTURE SITE HAEMATOMA [None]
